FAERS Safety Report 10471238 (Version 4)
Quarter: 2014Q4

REPORT INFORMATION
  Report Type: Spontaneous
  Country: IT (occurrence: IT)
  Receive Date: 20140923
  Receipt Date: 20141126
  Transmission Date: 20150528
  Serious: Yes (Death)
  Sender: FDA-Public Use
  Company Number: IT-009507513-1409ITA010017

PATIENT
  Age: 87 Year
  Sex: Male

DRUGS (21)
  1. ETORICOXIB [Concomitant]
     Active Substance: ETORICOXIB
     Dosage: UNK, PRN
     Route: 048
     Dates: start: 20140723
  2. HUMALOG [Concomitant]
     Active Substance: INSULIN LISPRO
     Dosage: MAIN MEALS
  3. MONOKET [Concomitant]
     Active Substance: ISOSORBIDE MONONITRATE
     Dosage: 50 MG, QAM
     Dates: start: 20140828
  4. SIVASTIN [Concomitant]
     Active Substance: SIMVASTATIN
     Dosage: 40 MG, 1 TABLET ON EVENING
     Route: 048
     Dates: start: 20140723
  5. VASTAREL [Concomitant]
     Active Substance: TRIMETAZIDINE DIHYDROCHLORIDE
     Dosage: 1 TABLET / 3 TIMES
     Dates: start: 20140723
  6. SINVACOR 40 MG COMPRESSE RIVESTITE CON FILM [Suspect]
     Active Substance: SIMVASTATIN
     Indication: HYPERCHOLESTEROLAEMIA
     Dosage: STRENGTH: 40 MG (ALSO REPORTED AS 20 MG), 1 TABLET AT NIGHT (40 MG AT NIGHT)
     Route: 048
     Dates: end: 20140906
  7. ACETAMINOPHEN. [Concomitant]
     Active Substance: ACETAMINOPHEN
     Dosage: 1000 MG: 1 EFFERVESCENT TABLET EVERY 8 HOURS
     Route: 048
     Dates: start: 20140828
  8. CARDIRENE [Concomitant]
     Active Substance: ASPIRIN DL-LYSINE
     Dosage: 75 MG
     Dates: start: 20140723
  9. TENORMIN [Concomitant]
     Active Substance: ATENOLOL
     Dosage: 100 MG: 1/4 TABLET
     Dates: start: 20140723
  10. PROCORALAN [Concomitant]
     Active Substance: IVABRADINE
     Dosage: 5 MG IN THE MORNING+ 7,5 MG IN THE EVENING
     Dates: start: 20140723
  11. INSULIN R (INSULIN HUMAN) [Concomitant]
     Dosage: UNK
     Dates: start: 20140827
  12. SIMVASTATIN. [Concomitant]
     Active Substance: SIMVASTATIN
     Dosage: 40 MG
  13. PROMAZINE HYDROCHLORIDE [Concomitant]
     Active Substance: PROMAZINE HYDROCHLORIDE
     Dosage: FORMULATION: DROPS, 5 DROPS TWICE, MORNING AND EVENING
     Dates: start: 20140828
  14. ENOXAPARIN SODIUM. [Concomitant]
     Active Substance: ENOXAPARIN SODIUM
     Dosage: 1 VIAL (4000 IU) IN THE MORNING
     Route: 058
     Dates: start: 20140828
  15. PROCORALAN [Concomitant]
     Active Substance: IVABRADINE
     Dosage: 5 MG: 1 X 2 TABLET, MORNING AND EVENING
     Dates: start: 20140828
  16. BISOPROLOL [Concomitant]
     Active Substance: BISOPROLOL
     Dosage: 1.25 MG, IN THE MORNING
     Dates: start: 20140827
  17. PANTORC [Concomitant]
     Active Substance: PANTOPRAZOLE SODIUM
     Dosage: 20 MG, IN THE MORNING
     Dates: start: 20140828
  18. ATENOLOL. [Concomitant]
     Active Substance: ATENOLOL
     Dosage: 100 MG: 1/4 TABLET IN THE MORNING
     Dates: start: 20140828
  19. MONOKET [Concomitant]
     Active Substance: ISOSORBIDE MONONITRATE
     Dosage: 1 TABLET
     Dates: start: 20140723
  20. LANTUS [Concomitant]
     Active Substance: INSULIN GLARGINE
     Dosage: IN THE EVENING
     Dates: start: 20140828
  21. PARACETAMOL FRESENIUS KABI [Suspect]
     Active Substance: ACETAMINOPHEN
     Indication: ANALGESIC THERAPY
     Dosage: STRENGTH: 10MG/ML; 1000 MG X 3, EVERY EIGHT HOURS
     Route: 042
     Dates: start: 20140827, end: 20140906

REACTIONS (2)
  - Cardiogenic shock [Fatal]
  - Drug-induced liver injury [Fatal]

NARRATIVE: CASE EVENT DATE: 20140906
